FAERS Safety Report 6383113-7 (Version None)
Quarter: 2009Q3

REPORT INFORMATION
  Report Type: 
  Country: None (occurrence: None)
  Receive Date: 20090930
  Receipt Date: 20090916
  Transmission Date: 20100115
  Serious: Yes (Other)
  Sender: FDA-Public Use
  Company Number: GB-MERCK-0909GBR00051

PATIENT
  Age: 50 Year
  Sex: Female

DRUGS (6)
  1. CRIXIVAN [Suspect]
     Indication: HIV INFECTION
     Route: 048
  2. DIDANOSINE [Suspect]
     Indication: HIV INFECTION
     Route: 048
  3. NELFINAVIR MESYLATE [Suspect]
     Indication: HIV INFECTION
     Route: 048
  4. SAQUINAVIR [Suspect]
     Indication: HIV INFECTION
     Route: 048
  5. STAVUDINE [Suspect]
     Indication: HIV INFECTION
     Route: 048
  6. ZIDOVUDINE [Suspect]
     Indication: HIV INFECTION
     Route: 048

REACTIONS (4)
  - ADVERSE DRUG REACTION [None]
  - DRUG TOXICITY [None]
  - PATHOGEN RESISTANCE [None]
  - VIROLOGIC FAILURE [None]
